FAERS Safety Report 7543313-7 (Version None)
Quarter: 2011Q2

REPORT INFORMATION
  Report Type: 
  Country: None (occurrence: None)
  Receive Date: 20110524
  Receipt Date: 20110307
  Transmission Date: 20111010
  Serious: No
  Sender: FDA-Public Use
  Company Number: 024329

PATIENT
  Sex: Female
  Weight: 113.3993 kg

DRUGS (16)
  1. METFORMIN HCL [Concomitant]
  2. ALBUTEROL SULFATE AUTOHALER [Concomitant]
  3. LUNESTA [Concomitant]
  4. IMODIUM [Concomitant]
  5. PROTONIX [Concomitant]
  6. LEXAPRO [Concomitant]
  7. ZOCOR [Concomitant]
  8. VITAMIN D [Concomitant]
  9. CALCIUM CARBONATE [Concomitant]
  10. NEURONTIN [Concomitant]
  11. HYDROCODONE [Concomitant]
  12. LANTUS [Concomitant]
  13. FLEXERIL [Concomitant]
  14. BYETTA [Concomitant]
  15. PROMETHAZINE [Concomitant]
  16. CIMZIA [Suspect]
     Indication: CROHN'S DISEASE
     Dosage: 400 MG 1X/4 WEEKS, PFS SUBCUTANEOUS
     Route: 058
     Dates: start: 20100601

REACTIONS (12)
  - MUSCLE SPASMS [None]
  - HALLUCINATION, VISUAL [None]
  - DIARRHOEA [None]
  - HAEMATOCHEZIA [None]
  - HYPERHIDROSIS [None]
  - INJECTION SITE PAIN [None]
  - FEELING HOT [None]
  - ARTHRALGIA [None]
  - ABNORMAL SLEEP-RELATED EVENT [None]
  - PAIN IN EXTREMITY [None]
  - DRUG INEFFECTIVE [None]
  - INSOMNIA [None]
